FAERS Safety Report 8767378 (Version 3)
Quarter: 2012Q4

REPORT INFORMATION
  Report Type: Report from Study
  Country: US (occurrence: US)
  Receive Date: 20120904
  Receipt Date: 20120913
  Transmission Date: 20130627
  Serious: Yes (Hospitalization)
  Sender: FDA-Public Use
  Company Number: US-JNJFOC-20120814406

PATIENT
  Age: 14 Year
  Sex: Male
  Weight: 57.2 kg

DRUGS (7)
  1. REMICADE [Suspect]
     Indication: CROHN^S DISEASE
     Route: 042
     Dates: start: 201208
  2. REMICADE [Suspect]
     Indication: CROHN^S DISEASE
     Dosage: dose was ^postponed^
     Route: 042
     Dates: start: 20110719
  3. TYLENOL [Concomitant]
  4. PRILOSEC [Concomitant]
  5. PREDNISONE [Concomitant]
  6. CALCIUM [Concomitant]
  7. MULTIVITAMINS [Concomitant]

REACTIONS (1)
  - Crohn^s disease [Recovered/Resolved]
